FAERS Safety Report 11749293 (Version 2)
Quarter: 2016Q1

REPORT INFORMATION
  Report Type: Spontaneous
  Country: IT (occurrence: IT)
  Receive Date: 20151118
  Receipt Date: 20160106
  Transmission Date: 20160525
  Serious: Yes (Hospitalization)
  Sender: FDA-Public Use
  Company Number: IT-ROCHE-1661873

PATIENT
  Age: 61 Year
  Sex: Male

DRUGS (4)
  1. VALIUM [Suspect]
     Active Substance: DIAZEPAM
     Indication: DRUG ABUSE
     Dosage: 5 MG/ML ORAL DROPS, SOLUTION 20ML BOTTLE
     Route: 048
     Dates: start: 20150907, end: 20150907
  2. BISOPROLOL HEMIFUMARATE [Suspect]
     Active Substance: BISOPROLOL FUMARATE
     Indication: DRUG ABUSE
     Route: 048
     Dates: start: 20150907, end: 20150907
  3. LANSOPRAZOLE. [Suspect]
     Active Substance: LANSOPRAZOLE
     Indication: DRUG ABUSE
     Route: 048
     Dates: start: 20150907, end: 20150907
  4. DELTACORTENE [Suspect]
     Active Substance: PREDNISONE
     Indication: DRUG ABUSE
     Dosage: 25 MG TABLETS^ 10 TABLETS
     Route: 048
     Dates: start: 20150907, end: 20150907

REACTIONS (4)
  - Electrocardiogram ST segment abnormal [Recovered/Resolved]
  - Sopor [Recovered/Resolved]
  - Drug abuse [Unknown]
  - Intentional self-injury [Unknown]

NARRATIVE: CASE EVENT DATE: 20150907
